FAERS Safety Report 5020419-8 (Version None)
Quarter: 2006Q2

REPORT INFORMATION
  Report Type: 
  Country: None (occurrence: None)
  Receive Date: 20060607
  Receipt Date: 20060526
  Transmission Date: 20061013
  Serious: Yes (Other)
  Sender: FDA-Public Use
  Company Number: PHBS2006NZ07781

PATIENT
  Sex: Male

DRUGS (1)
  1. CLOZARIL [Suspect]
     Indication: SCHIZOPHRENIA
     Dosage: 450 MG/D
     Route: 048
     Dates: start: 20010518

REACTIONS (3)
  - BLOOD PROLACTIN INCREASED [None]
  - DROOLING [None]
  - PITUITARY TUMOUR BENIGN [None]
